FAERS Safety Report 8297278-3 (Version None)
Quarter: 2012Q2

REPORT INFORMATION
  Report Type: 
  Country: None (occurrence: None)
  Receive Date: 20120417
  Receipt Date: 20120412
  Transmission Date: 20120825
  Serious: Yes (Other)
  Sender: FDA-Public Use
  Company Number: A0972326A

PATIENT
  Age: 86 Year
  Sex: Male

DRUGS (3)
  1. CLOPIDROGREL BISULFATE [Suspect]
     Indication: ANTICOAGULANT THERAPY
     Dosage: UNK / UNK / ORAL
     Route: 048
  2. CALCIUM CARBONATE [Suspect]
     Indication: GASTRITIS
     Dosage: UNK / UNK / UNKNOWN
     Dates: end: 20120404
  3. VALSARTAN [Suspect]
     Indication: CARDIAC DISORDER
     Dosage: UNK / PER DAY / ORAL
     Route: 048

REACTIONS (6)
  - HAEMORRHAGIC DIATHESIS [None]
  - DRUG INTERACTION [None]
  - MEMORY IMPAIRMENT [None]
  - LACERATION [None]
  - CONTUSION [None]
  - IMPAIRED HEALING [None]
